FAERS Safety Report 7866010-7 (Version None)
Quarter: 2011Q4

REPORT INFORMATION
  Report Type: 
  Country: None (occurrence: None)
  Receive Date: 20111028
  Receipt Date: 20110407
  Transmission Date: 20120403
  Serious: No
  Sender: FDA-Public Use
  Company Number: US-GLAXOSMITHKLINE-A0921820A

PATIENT
  Age: 81 Year
  Sex: Male

DRUGS (2)
  1. INHALER [Concomitant]
  2. ADVAIR DISKUS 100/50 [Suspect]
     Indication: LUNG DISORDER
     Dosage: 1PUFF TWICE PER DAY
     Route: 055
     Dates: start: 20091201

REACTIONS (3)
  - INHALATION THERAPY [None]
  - DYSPNOEA [None]
  - PRODUCT QUALITY ISSUE [None]
